FAERS Safety Report 6205688-0 (Version None)
Quarter: 2009Q2

REPORT INFORMATION
  Report Type: 
  Country: None (occurrence: None)
  Receive Date: 20090527
  Receipt Date: 20090416
  Transmission Date: 20091009
  Serious: No
  Sender: FDA-Public Use
  Company Number: US-ABBOTT-09P-163-0568947-00

PATIENT
  Sex: Female
  Weight: 71.278 kg

DRUGS (4)
  1. SIMCOR [Suspect]
     Indication: HIGH DENSITY LIPOPROTEIN DECREASED
     Dosage: 500 / 20 MG
     Dates: start: 20090406
  2. TARKA [Concomitant]
     Indication: HYPERTENSION
  3. BENICAR [Concomitant]
     Indication: HYPERTENSION
  4. ALLEGRA [Concomitant]
     Indication: SEASONAL ALLERGY

REACTIONS (4)
  - FLUSHING [None]
  - MYALGIA [None]
  - PRURITUS [None]
  - STOMATITIS [None]
